FAERS Safety Report 12633961 (Version 1)
Quarter: 2016Q3

REPORT INFORMATION
  Report Type: Spontaneous
  Country: US (occurrence: US)
  Receive Date: 20160809
  Receipt Date: 20160809
  Transmission Date: 20161109
  Serious: Yes (Other)
  Sender: FDA-Public Use
  Company Number: US-IPSEN BIOPHARMACEUTICALS, INC.-2016-06634

PATIENT
  Sex: Female
  Weight: 49.89 kg

DRUGS (6)
  1. DYSPORT [Suspect]
     Active Substance: ABOBOTULINUMTOXINA
     Indication: PRODUCT USE ISSUE
  2. MULTIVITAMIN [Concomitant]
     Active Substance: VITAMINS
  3. DYSPORT [Suspect]
     Active Substance: ABOBOTULINUMTOXINA
     Indication: MIGRAINE
     Dosage: 480 UNITS
     Route: 065
     Dates: start: 201509, end: 201509
  4. MAXALT [Concomitant]
     Active Substance: RIZATRIPTAN BENZOATE
     Indication: MIGRAINE
  5. VITAMIN D [Concomitant]
     Active Substance: CHOLECALCIFEROL
  6. CALCIUM [Concomitant]
     Active Substance: CALCIUM

REACTIONS (7)
  - Fall [Unknown]
  - Muscular weakness [Recovered/Resolved]
  - Eyelid ptosis [Not Recovered/Not Resolved]
  - Face injury [Unknown]
  - Loss of consciousness [Unknown]
  - Trigeminal neuralgia [Not Recovered/Not Resolved]
  - Neck pain [Recovered/Resolved]

NARRATIVE: CASE EVENT DATE: 2015
